FAERS Safety Report 4426876-X (Version None)
Quarter: 2004Q3

REPORT INFORMATION
  Report Type: 
  Country: None (occurrence: None)
  Receive Date: 20040811
  Receipt Date: 20040726
  Transmission Date: 20050211
  Serious: Yes (Hospitalization)
  Sender: FDA-Public Use
  Company Number: FR_040704508

PATIENT
  Age: 42 Year
  Sex: Male

DRUGS (3)
  1. ZYPREXA [Suspect]
     Dates: start: 20040517, end: 20040526
  2. AKINETON [Concomitant]
  3. TERCIAN (CYAMEMAZINE) [Concomitant]

REACTIONS (2)
  - HEPATOCELLULAR DAMAGE [None]
  - PYREXIA [None]
